FAERS Safety Report 13392354 (Version 1)
Quarter: 2017Q1

REPORT INFORMATION
  Report Type: Spontaneous
  Country: US (occurrence: US)
  Receive Date: 20170331
  Receipt Date: 20170331
  Transmission Date: 20170429
  Serious: Yes (Other)
  Sender: FDA-Public Use
  Company Number: US-AMGEN-USASP2017048293

PATIENT
  Age: 62 Year
  Sex: Male

DRUGS (5)
  1. XTANDI [Suspect]
     Active Substance: ENZALUTAMIDE
     Indication: HORMONE-REFRACTORY PROSTATE CANCER
     Dosage: 160 MG, QD
     Route: 048
     Dates: start: 20150615
  2. XGEVA [Suspect]
     Active Substance: DENOSUMAB
     Indication: PRODUCT USED FOR UNKNOWN INDICATION
     Dosage: UNK UNK, QMO
     Route: 065
  3. PERCOCET [Suspect]
     Active Substance: ACETAMINOPHEN\OXYCODONE HYDROCHLORIDE
     Indication: PRODUCT USED FOR UNKNOWN INDICATION
     Dosage: 3 DF, AT ONCE
     Route: 065
  4. LUPRON [Concomitant]
     Active Substance: LEUPROLIDE ACETATE
  5. RESTORIL [Concomitant]
     Active Substance: TEMAZEPAM

REACTIONS (13)
  - Exposed bone in jaw [Not Recovered/Not Resolved]
  - Back pain [Recovered/Resolved]
  - Impaired healing [Not Recovered/Not Resolved]
  - Malignant neoplasm progression [Unknown]
  - Teeth brittle [Not Recovered/Not Resolved]
  - Toothache [Not Recovered/Not Resolved]
  - Insomnia [Unknown]
  - Tooth resorption [Not Recovered/Not Resolved]
  - Acute myocardial infarction [Recovered/Resolved]
  - Prostatic specific antigen increased [Unknown]
  - Tooth abscess [Unknown]
  - Tooth fracture [Not Recovered/Not Resolved]
  - Anxiety [Unknown]

NARRATIVE: CASE EVENT DATE: 201506
